FAERS Safety Report 7498750-6 (Version None)
Quarter: 2011Q2

REPORT INFORMATION
  Report Type: 
  Country: None (occurrence: None)
  Receive Date: 20110524
  Receipt Date: 20110504
  Transmission Date: 20111010
  Serious: No
  Sender: FDA-Public Use
  Company Number: US-B.I. PHARMACEUTICALS,INC./RIDGEFIELD-2011-BP-07899BP

PATIENT
  Age: 81 Year
  Sex: Female

DRUGS (14)
  1. LAVONA [Concomitant]
  2. ISOSORBIDE DINITRATE [Concomitant]
  3. ENALAPRIL MALEATE [Concomitant]
  4. MULTI-VITAMIN [Concomitant]
  5. CLARITIN [Concomitant]
  6. LASIX [Concomitant]
  7. HYDROXYUREA [Concomitant]
  8. FERROUS SULFATE TAB [Concomitant]
  9. SOTALOL HCL [Concomitant]
  10. PRADAXA [Suspect]
     Indication: ATRIAL FIBRILLATION
     Dosage: 300 MG
     Route: 048
     Dates: start: 20110310
  11. LIALDA [Concomitant]
  12. PLAVIX [Concomitant]
  13. SYNTHROID [Concomitant]
  14. VITAMIN B COMPLEX CAP [Concomitant]

REACTIONS (1)
  - NERVOUSNESS [None]
